FAERS Safety Report 16032918 (Version 10)
Quarter: 2020Q4

REPORT INFORMATION
  Report Type: Report from Study
  Country: FR (occurrence: FR)
  Receive Date: 20190305
  Receipt Date: 20201130
  Transmission Date: 20210113
  Serious: Yes (Hospitalization)
  Sender: FDA-Public Use
  Company Number: FR-ROCHE-2268137

PATIENT
  Age: 72 Year
  Sex: Female
  Weight: 67 kg

DRUGS (5)
  1. VENETOCLAX. [Suspect]
     Active Substance: VENETOCLAX
     Indication: B-CELL LYMPHOMA
     Dosage: FROM DAY 8 OF CYCLE 1, EVERY DAY DURING 18 MONTHS, LAST ADMINISTRATION BEFORE SAE UNKNOWN
     Route: 065
     Dates: start: 20181129
  2. INNOHEP [Concomitant]
     Active Substance: TINZAPARIN SODIUM
     Indication: ANTICOAGULANT THERAPY
     Route: 065
     Dates: end: 20190213
  3. KARDEGIC [Concomitant]
     Active Substance: ASPIRIN DL-LYSINE
     Dates: end: 20190225
  4. ATEZOLIZUMAB. [Suspect]
     Active Substance: ATEZOLIZUMAB
     Indication: B-CELL LYMPHOMA
     Dosage: LAST ADMINISTRATION BEFORE SAE 26/JAN/2019
     Route: 065
     Dates: start: 20181123
  5. OBINUTUZUMAB. [Suspect]
     Active Substance: OBINUTUZUMAB
     Indication: B-CELL LYMPHOMA
     Dosage: LAST ADMINISTRATION BEFORE SAE 25/JAN/2019
     Route: 065
     Dates: start: 20181122

REACTIONS (5)
  - Melaena [Recovered/Resolved]
  - Thrombocytopenia [Not Recovered/Not Resolved]
  - Device related infection [Recovered/Resolved with Sequelae]
  - Fall [Unknown]
  - Anaemia [Recovered/Resolved]

NARRATIVE: CASE EVENT DATE: 20190212
